FAERS Safety Report 5069158-8 (Version None)
Quarter: 2006Q3

REPORT INFORMATION
  Report Type: 
  Country: None (occurrence: None)
  Receive Date: 20060731
  Receipt Date: 20060724
  Transmission Date: 20061208
  Serious: Yes (Other)
  Sender: FDA-Public Use
  Company Number: 234655K06USA

PATIENT
  Age: 51 Year
  Sex: Female

DRUGS (2)
  1. REBIF [Suspect]
     Indication: MULTIPLE SCLEROSIS
     Dosage: NOT REPORTED, 3 IN 1 WEEKS, SUBCUTANEOUS ; 22 MCG ; 3 IN 1 WEEKS, SUBCUTANEOUS
     Route: 058
     Dates: start: 20060316, end: 20060601
  2. REBIF [Suspect]
     Indication: MULTIPLE SCLEROSIS
     Dosage: NOT REPORTED, 3 IN 1 WEEKS, SUBCUTANEOUS ; 22 MCG ; 3 IN 1 WEEKS, SUBCUTANEOUS
     Route: 058
     Dates: start: 20060601, end: 20060701

REACTIONS (1)
  - BASEDOW'S DISEASE [None]
